FAERS Safety Report 10211163 (Version 1)
Quarter: 2014Q2

REPORT INFORMATION
  Report Type: Report from Study
  Country: US (occurrence: US)
  Receive Date: 20140602
  Receipt Date: 20140602
  Transmission Date: 20141212
  Serious: No
  Sender: FDA-Public Use
  Company Number: US-ABBVIE-13P-163-1134376-00

PATIENT
  Sex: Female
  Weight: 81.72 kg

DRUGS (4)
  1. MARINOL [Suspect]
     Indication: MULTIPLE SCLEROSIS
     Dates: start: 201305
  2. MARINOL [Suspect]
     Indication: DYSTONIA
  3. DEPAKOTE [Concomitant]
     Indication: NEUROPATHY PERIPHERAL
  4. XANAX [Concomitant]
     Indication: ANXIETY

REACTIONS (1)
  - Euphoric mood [Not Recovered/Not Resolved]
